FAERS Safety Report 9257068 (Version 1)
Quarter: 2013Q2

REPORT INFORMATION
  Report Type: Spontaneous
  Country: US (occurrence: None)
  Receive Date: 20130424
  Receipt Date: 20130424
  Transmission Date: 20140414
  Serious: Yes (Disabling, Congenital Anomaly)
  Sender: FDA-Public Use
  Company Number: None

PATIENT
  Sex: Female
  Weight: 84.82 kg

DRUGS (1)
  1. LYRICA [Suspect]
     Indication: BURNING SENSATION
     Dates: start: 20110819

REACTIONS (3)
  - Amnesia [None]
  - Activities of daily living impaired [None]
  - Impaired driving ability [None]
